FAERS Safety Report 4898626-4 (Version None)
Quarter: 2006Q1

REPORT INFORMATION
  Report Type: 
  Country: None (occurrence: None)
  Receive Date: 20060130
  Receipt Date: 20060124
  Transmission Date: 20060701
  Serious: Yes (Hospitalization, Other)
  Sender: FDA-Public Use
  Company Number: HQWYE502126JAN06

PATIENT
  Age: 17 Year
  Sex: Male

DRUGS (6)
  1. ADVIL [Suspect]
     Indication: HEADACHE
     Dosage: ^LARGE DOSES^ WERE PRESCRIBED, 1200 MG PER DAY
  2. ADVIL [Suspect]
     Indication: MYALGIA
     Dosage: ^LARGE DOSES^ WERE PRESCRIBED, 1200 MG PER DAY
  3. ADVIL [Suspect]
     Indication: PYREXIA
     Dosage: ^LARGE DOSES^ WERE PRESCRIBED, 1200 MG PER DAY
  4. ACETAMINOPHEN [Suspect]
     Indication: HEADACHE
  5. ACETAMINOPHEN [Suspect]
     Indication: MYALGIA
  6. ACETAMINOPHEN [Suspect]
     Indication: PYREXIA

REACTIONS (4)
  - HEART RATE INCREASED [None]
  - MENINGITIS MENINGOCOCCAL [None]
  - MYALGIA [None]
  - PHOTOPHOBIA [None]
